FAERS Safety Report 6528771-9 (Version None)
Quarter: 2010Q1

REPORT INFORMATION
  Report Type: 
  Country: None (occurrence: None)
  Receive Date: 20100106
  Receipt Date: 20091228
  Transmission Date: 20100710
  Serious: No
  Sender: FDA-Public Use
  Company Number: PHEH2009US18458

PATIENT
  Sex: Male

DRUGS (7)
  1. TASIGNA [Suspect]
     Indication: CHRONIC MYELOID LEUKAEMIA
     Dosage: 400 MG, BID
     Route: 048
     Dates: start: 20091201
  2. METFORMIN HYDROCHLORIDE [Concomitant]
  3. METOPROLOL [Concomitant]
  4. COUMADIN [Concomitant]
  5. DIGOXIN [Concomitant]
  6. AMARYL [Concomitant]
  7. TRICOR [Concomitant]

REACTIONS (2)
  - ABDOMINAL PAIN UPPER [None]
  - MEDICATION ERROR [None]
